FAERS Safety Report 16498432 (Version 1)
Quarter: 2019Q2

REPORT INFORMATION
  Report Type: Spontaneous
  Country: US (occurrence: US)
  Receive Date: 20190629
  Receipt Date: 20190629
  Transmission Date: 20190711
  Serious: Yes (Life-Threatening, Hospitalization, Other)
  Sender: FDA-Public Use
  Company Number: US-AUROBINDO-AUR-APL-2019-036065

PATIENT

DRUGS (1)
  1. METOPROLOL FILM-COATED TABLET [Suspect]
     Active Substance: METOPROLOL
     Indication: HYPERTENSION
     Dosage: UNK, 1 EXTRA TABLET
     Route: 065

REACTIONS (7)
  - Mental disorder [Unknown]
  - Bradycardia [Recovered/Resolved]
  - Condition aggravated [Unknown]
  - Toxicity to various agents [Unknown]
  - Hyperkalaemia [Unknown]
  - Renal failure [Unknown]
  - Hypotension [Recovered/Resolved]
